FAERS Safety Report 7094393-7 (Version None)
Quarter: 2010Q4

REPORT INFORMATION
  Report Type: 
  Country: None (occurrence: None)
  Receive Date: 20101110
  Receipt Date: 20101101
  Transmission Date: 20110411
  Serious: Yes (Other)
  Sender: FDA-Public Use
  Company Number: US-JNJCH-2010025339

PATIENT
  Sex: Male

DRUGS (1)
  1. LISTERINE WHITENING PRE-BRUSH RINSE [Suspect]
     Indication: DENTAL DISORDER PROPHYLAXIS
     Dosage: TEXT:A COUPLE TEASPOONSFUL ONCE PER DAY
     Route: 048
     Dates: start: 20100924, end: 20101031

REACTIONS (3)
  - TOOTH FRACTURE [None]
  - TOOTH INJURY [None]
  - UNDERDOSE [None]
